FAERS Safety Report 6665979-6 (Version None)
Quarter: 2010Q2

REPORT INFORMATION
  Report Type: 
  Country: None (occurrence: None)
  Receive Date: 20100402
  Receipt Date: 20100325
  Transmission Date: 20101027
  Serious: Yes (Other)
  Sender: FDA-Public Use
  Company Number: FR-ABBOTT-10P-056-0625640-00

PATIENT
  Sex: Female

DRUGS (2)
  1. ERYTHROCINE [Suspect]
     Indication: CHLAMYDIAL INFECTION
     Route: 048
     Dates: start: 20091208
  2. ECONAZOLE NITRATE [Concomitant]
     Indication: DRUG USE FOR UNKNOWN INDICATION

REACTIONS (8)
  - ABDOMINAL PAIN [None]
  - HEPATITIS [None]
  - JAUNDICE [None]
  - NAUSEA [None]
  - PALPATORY FINDING ABNORMAL [None]
  - PYREXIA [None]
  - RASH [None]
  - URTICARIA [None]
